FAERS Safety Report 7992368-4 (Version None)
Quarter: 2011Q4

REPORT INFORMATION
  Report Type: 
  Country: None (occurrence: None)
  Receive Date: 20111219
  Receipt Date: 20110812
  Transmission Date: 20120403
  Serious: No
  Sender: FDA-Public Use
  Company Number: US-ASTRAZENECA-2011SE48699

PATIENT
  Sex: Female

DRUGS (6)
  1. ENALAPRIL MALEATE [Concomitant]
  2. CRESTOR [Suspect]
     Route: 048
  3. ACETAMINOPHEN AND HYDROCODONE BITARTRATE [Concomitant]
     Indication: PAIN
  4. NOVOLOG [Concomitant]
  5. JANUMET [Concomitant]
  6. TOPROL-XL [Concomitant]

REACTIONS (6)
  - DYSPNOEA [None]
  - HYPERLIPIDAEMIA [None]
  - CAROTID BRUIT [None]
  - MENOPAUSE [None]
  - OBESITY [None]
  - HAEMATOCHEZIA [None]
